FAERS Safety Report 9780225 (Version 2)
Quarter: 2014Q1

REPORT INFORMATION
  Report Type: Spontaneous
  Country: DE (occurrence: DE)
  Receive Date: 20131223
  Receipt Date: 20140204
  Transmission Date: 20141002
  Serious: Yes (Hospitalization)
  Sender: FDA-Public Use
  Company Number: DE-CELGENEUS-062-21880-13121990

PATIENT
  Age: 31 Year
  Sex: Male
  Weight: 75 kg

DRUGS (29)
  1. REVLIMID [Suspect]
     Indication: ACUTE MYELOID LEUKAEMIA
     Dosage: 15 MILLIGRAM
     Route: 048
     Dates: start: 20130722, end: 20130908
  2. VIDAZA [Suspect]
     Indication: ACUTE MYELOID LEUKAEMIA
     Dosage: 142 MILLIGRAM
     Route: 058
     Dates: start: 20130715, end: 20130721
  3. VIDAZA [Suspect]
     Dosage: 142 MILLIGRAM
     Route: 058
     Dates: start: 20130902, end: 20130908
  4. AMSACRINE [Concomitant]
     Indication: ACUTE MYELOID LEUKAEMIA
     Route: 065
     Dates: start: 201309
  5. ECURAL [Concomitant]
     Indication: ACUTE GRAFT VERSUS HOST DISEASE
     Route: 061
  6. PANTOZOL [Concomitant]
     Indication: GASTRITIS PROPHYLAXIS
     Dosage: 40 MILLIGRAM
     Route: 065
  7. PANTOZOL [Concomitant]
     Route: 065
     Dates: start: 201205, end: 201206
  8. PANTOZOL [Concomitant]
     Route: 065
     Dates: start: 201206, end: 201207
  9. PANTOZOL [Concomitant]
     Route: 065
     Dates: start: 201308, end: 201308
  10. PANTOZOL [Concomitant]
     Route: 065
     Dates: start: 20130416
  11. PANTOZOL [Concomitant]
     Route: 065
     Dates: start: 201309
  12. CEFPO [Concomitant]
     Indication: INFECTION PROPHYLAXIS
     Route: 065
  13. CEFPO [Concomitant]
     Route: 065
     Dates: start: 201205, end: 201206
  14. CEFPO [Concomitant]
     Route: 065
     Dates: start: 201206, end: 201207
  15. CEFPO [Concomitant]
     Route: 065
     Dates: start: 201308, end: 201308
  16. CEFPO [Concomitant]
     Route: 065
     Dates: start: 20130416
  17. CEFPO [Concomitant]
     Route: 065
     Dates: start: 201309
  18. TAVANIC [Concomitant]
     Indication: INFECTION PROPHYLAXIS
     Route: 065
     Dates: start: 20130729, end: 20130819
  19. TAVANIC [Concomitant]
     Route: 065
     Dates: start: 201205, end: 201206
  20. TAVANIC [Concomitant]
     Route: 065
     Dates: start: 201206, end: 201207
  21. TAVANIC [Concomitant]
     Route: 065
     Dates: start: 201308, end: 201308
  22. TAVANIC [Concomitant]
     Route: 065
     Dates: start: 20130416
  23. TAVANIC [Concomitant]
     Route: 065
     Dates: start: 201309
  24. FLUCONAZOLE [Concomitant]
     Indication: PRODUCT USED FOR UNKNOWN INDICATION
     Dosage: 200 MILLIGRAM
     Route: 065
     Dates: start: 20130729, end: 20130819
  25. FLUCONAZOLE [Concomitant]
     Route: 065
     Dates: start: 201205, end: 201206
  26. FLUCONAZOLE [Concomitant]
     Route: 065
     Dates: start: 201206, end: 201207
  27. FLUCONAZOLE [Concomitant]
     Route: 065
     Dates: start: 201308, end: 201308
  28. FLUCONAZOLE [Concomitant]
     Route: 065
     Dates: start: 20130416
  29. FLUCONAZOLE [Concomitant]
     Route: 065
     Dates: start: 201309

REACTIONS (6)
  - Acute graft versus host disease in liver [Not Recovered/Not Resolved]
  - Acute graft versus host disease [Not Recovered/Not Resolved]
  - Cytomegalovirus enteritis [Not Recovered/Not Resolved]
  - Renal failure [Not Recovered/Not Resolved]
  - Thrombocytopenia [Not Recovered/Not Resolved]
  - Cytomegalovirus infection [Not Recovered/Not Resolved]
